FAERS Safety Report 26154927 (Version 1)
Quarter: 2025Q4

REPORT INFORMATION
  Report Type: Spontaneous
  Country: EU (occurrence: EU)
  Receive Date: 20251215
  Receipt Date: 20251215
  Transmission Date: 20260117
  Serious: Yes (Other)
  Sender: AUROBINDO
  Company Number: EU-LRB-01099815

PATIENT
  Age: 60 Year
  Sex: Male
  Weight: 90 kg

DRUGS (5)
  1. TADALAFIL [Suspect]
     Active Substance: TADALAFIL
     Indication: Erectile dysfunction
     Dosage: 1X PER DAG
     Route: 061
     Dates: start: 20251029, end: 20251031
  2. LISINOPRIL [Concomitant]
     Active Substance: LISINOPRIL
     Indication: Product used for unknown indication
     Dosage: 10 MILLIGRAM
     Route: 061
  3. BISOPROLOL TABLET   2,5MG / Brand name not specified [Concomitant]
     Indication: Product used for unknown indication
     Dosage: 2.5 MILLIGRAM
     Route: 061
  4. HYDROCHLOROTHIAZIDE [Concomitant]
     Active Substance: HYDROCHLOROTHIAZIDE
     Indication: Product used for unknown indication
     Dosage: 12.5 MILLIGRAM
     Route: 061
  5. FENPROCOUMON TABLET 3MG / MARCOUMAR TABLET 3MG [Concomitant]
     Indication: Product used for unknown indication
     Dosage: 3 MILLIGRAM
     Route: 061

REACTIONS (1)
  - Epilepsy [Recovered/Resolved]
